FAERS Safety Report 6136896-5 (Version None)
Quarter: 2009Q1

REPORT INFORMATION
  Report Type: 
  Country: None (occurrence: None)
  Receive Date: 20090330
  Receipt Date: 20090320
  Transmission Date: 20090719
  Serious: Yes (Hospitalization)
  Sender: FDA-Public Use
  Company Number: US-AVENTIS-200912327US

PATIENT
  Age: 54 Year
  Sex: Male

DRUGS (2)
  1. LANTUS [Suspect]
     Route: 058
     Dates: start: 20080101, end: 20080101
  2. OPTICLIK (INSULIN INJECTION PEN) [Suspect]
     Dates: start: 20090101

REACTIONS (2)
  - ABDOMINAL PAIN UPPER [None]
  - GASTROINTESTINAL OBSTRUCTION [None]
